FAERS Safety Report 4461652-3 (Version None)
Quarter: 2004Q3

REPORT INFORMATION
  Report Type: 
  Country: None (occurrence: None)
  Receive Date: 20040927
  Receipt Date: 20040927
  Transmission Date: 20050211
  Serious: Yes (Other)
  Sender: FDA-Public Use
  Company Number: None

PATIENT
  Age: 89 Year
  Sex: Male
  Weight: 95.2554 kg

DRUGS (1)
  1. THERA -GASIC PLUS ALOE VERA ENRICHED MISSION  PHARMACEUTICAL [Suspect]
     Dosage: ONCE TOPICAL
     Route: 061
     Dates: start: 20040920, end: 20040920

REACTIONS (1)
  - APPLICATION SITE REACTION [None]
